FAERS Safety Report 18897853 (Version 1)
Quarter: 2021Q1

REPORT INFORMATION
  Report Type: Spontaneous
  Country: US (occurrence: US)
  Receive Date: 20210212
  Receipt Date: 20210212
  Transmission Date: 20210420
  Serious: Yes (Other)
  Sender: FDA-Public Use
  Company Number: None

PATIENT
  Sex: Male

DRUGS (2)
  1. TRAVOPROST. [Suspect]
     Active Substance: TRAVOPROST
  2. LATANOPROST. [Suspect]
     Active Substance: LATANOPROST

REACTIONS (2)
  - Reaction to preservatives [None]
  - Skin irritation [None]
